FAERS Safety Report 20673868 (Version 2)
Quarter: 2022Q2

REPORT INFORMATION
  Report Type: Spontaneous
  Country: US (occurrence: US)
  Receive Date: 20220405
  Receipt Date: 20220406
  Transmission Date: 20220721
  Serious: No
  Sender: FDA-Public Use
  Company Number: US-PFIZER INC-202200037953

PATIENT
  Age: 53 Year
  Sex: Female

DRUGS (1)
  1. IBRANCE [Suspect]
     Active Substance: PALBOCICLIB
     Dosage: 125 MG, CYCLIC (21 DAYS ON THEN 7 DAYS OFF OF EACH 28 DAY CYCLE)
     Route: 048
     Dates: start: 20211102, end: 202201

REACTIONS (7)
  - Bone pain [Unknown]
  - Oropharyngeal pain [Unknown]
  - Arthralgia [Unknown]
  - Pain [Unknown]
  - Depression [Unknown]
  - Malaise [Unknown]
  - Irritability [Unknown]
